FAERS Safety Report 14481518 (Version 3)
Quarter: 2018Q1

REPORT INFORMATION
  Report Type: Report from Study
  Country: JP (occurrence: JP)
  Receive Date: 20180202
  Receipt Date: 20180212
  Transmission Date: 20180509
  Serious: Yes (Hospitalization)
  Sender: FDA-Public Use
  Company Number: JP-PFIZER INC-2018041038

PATIENT
  Age: 91 Year
  Sex: Female

DRUGS (7)
  1. DIOVAN [Concomitant]
     Active Substance: VALSARTAN
     Dosage: UNK
  2. CRESTOR [Concomitant]
     Active Substance: ROSUVASTATIN CALCIUM
     Dosage: UNK
  3. LIMAPROST ALFADEX [Concomitant]
     Active Substance: LIMAPROST
     Dosage: UNK
     Route: 048
  4. CLOPIDOGREL [Concomitant]
     Active Substance: CLOPIDOGREL BISULFATE
     Indication: CEREBROVASCULAR ACCIDENT PROPHYLAXIS
     Dosage: UNK
     Route: 048
  5. ATEDIO [Concomitant]
     Indication: HYPERTENSION
     Dosage: UNK
     Route: 048
  6. ATELEC [Concomitant]
     Active Substance: CILNIDIPINE
     Indication: HYPERTENSION
     Dosage: UNK
     Route: 048
  7. SELARA [Suspect]
     Active Substance: EPLERENONE
     Indication: CARDIAC FAILURE CHRONIC
     Dosage: 25 MG, 1X/DAY
     Route: 048
     Dates: start: 20170725

REACTIONS (1)
  - Pleural effusion [Unknown]

NARRATIVE: CASE EVENT DATE: 20171031
